FAERS Safety Report 7619287-7 (Version None)
Quarter: 2011Q3

REPORT INFORMATION
  Report Type: 
  Country: None (occurrence: None)
  Receive Date: 20110718
  Receipt Date: 20110709
  Transmission Date: 20111222
  Serious: No
  Sender: FDA-Public Use
  Company Number: US-B.I. PHARMACEUTICALS,INC./RIDGEFIELD-2011-BP-07584BP

PATIENT
  Sex: Female

DRUGS (6)
  1. COZAAR [Concomitant]
     Indication: HYPERTENSION
  2. SYNTHROID [Concomitant]
     Indication: HYPOTHYROIDISM
  3. PRADAXA [Suspect]
     Indication: ATRIAL FIBRILLATION
     Dosage: 300 MG
     Route: 048
     Dates: start: 20110301
  4. ACTOS [Concomitant]
     Indication: DIABETES MELLITUS
  5. VALIUM [Concomitant]
     Indication: INSOMNIA
  6. TIKOSYN [Concomitant]
     Indication: ATRIAL FIBRILLATION

REACTIONS (5)
  - SKIN HAEMORRHAGE [None]
  - PAIN IN JAW [None]
  - HAEMORRHAGE [None]
  - HEADACHE [None]
  - SINUS HEADACHE [None]
